FAERS Safety Report 16414034 (Version 1)
Quarter: 2019Q2

REPORT INFORMATION
  Report Type: Report from Study
  Country: CN (occurrence: CN)
  Receive Date: 20190611
  Receipt Date: 20190611
  Transmission Date: 20190711
  Serious: Yes (Other)
  Sender: FDA-Public Use
  Company Number: CN-ROCHE-2333438

PATIENT

DRUGS (3)
  1. CISPLATIN. [Suspect]
     Active Substance: CISPLATIN
     Indication: GASTROINTESTINAL CARCINOMA
     Dosage: 20~30 MG/M2
     Route: 041
  2. PACLITAXEL. [Suspect]
     Active Substance: PACLITAXEL
     Indication: GASTROINTESTINAL CARCINOMA
     Dosage: 60~75 MG/M2
     Route: 041
  3. CAPECITABINE. [Suspect]
     Active Substance: CAPECITABINE
     Indication: GASTROINTESTINAL CARCINOMA
     Dosage: 1000 ~ 1500 MG/M2, 2 TIMES A DAY, HALF AN HOUR AFTER BREAKFAST AND DINNER FOR 2 WEEKS AS A COURSE OF
     Route: 048

REACTIONS (2)
  - Bone marrow failure [Unknown]
  - Renal impairment [Unknown]
